FAERS Safety Report 17366515 (Version 13)
Quarter: 2022Q1

REPORT INFORMATION
  Report Type: Spontaneous
  Country: US (occurrence: US)
  Receive Date: 20200204
  Receipt Date: 20220329
  Transmission Date: 20220424
  Serious: No
  Sender: FDA-Public Use
  Company Number: US-PFIZER INC-2020041617

PATIENT
  Age: 14 Year
  Sex: Female

DRUGS (7)
  1. GENOTROPIN [Suspect]
     Active Substance: SOMATROPIN
     Indication: Growth disorder
     Dosage: 1.6 MG, DAILY (1.6 OR 1.8 MG INJECTED DAILY, AS SHE NEEDS)
     Dates: start: 20180718
  2. GENOTROPIN [Suspect]
     Active Substance: SOMATROPIN
     Indication: Short stature
     Dosage: 1.8 MG, DAILY (1.6 OR 1.8 MG INJECTED DAILY, AS SHE NEEDS)
     Dates: start: 20180718
  3. GENOTROPIN [Suspect]
     Active Substance: SOMATROPIN
     Indication: Renal disorder
     Dosage: UNK
  4. GENOTROPIN [Suspect]
     Active Substance: SOMATROPIN
     Dosage: 1.8 MG, ALTERNATE DAY (ALTERNATING WITH 2.0 MG INJECTION NIGHTLY)
  5. GENOTROPIN [Suspect]
     Active Substance: SOMATROPIN
     Dosage: 2 MG, ALTERNATE DAY (ALTERNATELY WITH 1.8 MG INJECTION NIGHTLY)
  6. GENOTROPIN [Suspect]
     Active Substance: SOMATROPIN
     Dosage: 1.7 MG, DAILY
     Dates: start: 20180720
  7. SIMVASTATIN [Concomitant]
     Active Substance: SIMVASTATIN
     Indication: Blood cholesterol increased
     Dosage: 5 MG, DAILY
     Dates: start: 201807

REACTIONS (7)
  - Injection site mass [Unknown]
  - Fear of injection [Not Recovered/Not Resolved]
  - Incorrect dose administered [Unknown]
  - Product administered at inappropriate site [Unknown]
  - Drug dose omission by device [Unknown]
  - Wrong technique in device usage process [Unknown]
  - Device issue [Unknown]

NARRATIVE: CASE EVENT DATE: 20190901
